FAERS Safety Report 10282691 (Version 5)
Quarter: 2014Q4

REPORT INFORMATION
  Report Type: Spontaneous
  Country: IT (occurrence: IT)
  Receive Date: 20140707
  Receipt Date: 20141109
  Transmission Date: 20150528
  Serious: Yes (Death, Hospitalization, Other)
  Sender: FDA-Public Use
  Company Number: IT-BRISTOL-MYERS SQUIBB COMPANY-21115233

PATIENT
  Age: 65 Year
  Sex: Female

DRUGS (12)
  1. CARDIOASPIRIN [Interacting]
     Active Substance: ASPIRIN
     Indication: ACUTE MYOCARDIAL INFARCTION
     Dosage: STRENGTH:100 MG TABS
     Route: 048
     Dates: start: 20130610, end: 20140613
  2. ATORVASTATIN [Concomitant]
     Active Substance: ATORVASTATIN
     Route: 048
  3. LEVOTIROXINA [Concomitant]
     Active Substance: LEVOTHYROXINE SODIUM
     Route: 048
  4. KEPPRA [Concomitant]
     Active Substance: LEVETIRACETAM
     Dosage: STRENGTH:1000 MG TABS
     Route: 048
  5. CLEXANE [Interacting]
     Active Substance: ENOXAPARIN SODIUM
     Indication: CYANOSIS
     Dosage: STRENGTH:2000 IU AXA INJECTION SOLUTION
     Route: 058
     Dates: start: 20140527, end: 20140613
  6. PANTOPRAZOLE [Concomitant]
     Active Substance: PANTOPRAZOLE SODIUM
     Route: 048
  7. COUMADIN [Suspect]
     Active Substance: WARFARIN SODIUM
     Indication: ANTIPHOSPHOLIPID ANTIBODIES POSITIVE
     Dosage: FEB12
     Route: 048
     Dates: start: 20140523, end: 20140613
  8. BISOPROLOL HEMIFUMARATE [Concomitant]
     Active Substance: BISOPROLOL FUMARATE
  9. INSULIN [Concomitant]
     Active Substance: INSULIN NOS
  10. LUVION [Concomitant]
     Active Substance: CANRENONE
     Dosage: STRENGTH:50 MG TABS
     Route: 048
  11. URSODEOXYCHOLIC ACID [Concomitant]
     Active Substance: URSODIOL
     Route: 048
  12. AMLODIPINE [Concomitant]
     Active Substance: AMLODIPINE BESYLATE
     Dosage: STRENGTH:5 MG TABS
     Route: 048

REACTIONS (3)
  - Drug interaction [Unknown]
  - Cyanosis [Unknown]
  - Subarachnoid haemorrhage [Fatal]

NARRATIVE: CASE EVENT DATE: 2014
